FAERS Safety Report 25805749 (Version 1)
Quarter: 2025Q3

REPORT INFORMATION
  Report Type: Report from Study
  Country: GB (occurrence: GB)
  Receive Date: 20250916
  Receipt Date: 20250916
  Transmission Date: 20251020
  Serious: Yes (Hospitalization)
  Sender: ABBVIE
  Company Number: GB-ABBVIE-6456337

PATIENT
  Age: 61 Year
  Sex: Female

DRUGS (2)
  1. SKYRIZI [Suspect]
     Active Substance: RISANKIZUMAB-RZAA
     Indication: Crohn^s disease
     Dosage: SKYRIZI 360MG/2.4ML ?DOSE- 1.00 EA?LAST ADMIN DATE: 2025?FOA: SOLUTION FOR INJECTION IN CARTRIDGE
     Route: 058
     Dates: start: 20250225
  2. SKYRIZI [Suspect]
     Active Substance: RISANKIZUMAB-RZAA
     Dosage: SKYRIZI 360MG/2.4ML ?DOSE- 1.00 EA?FOA: SOLUTION FOR INJECTION IN CARTRIDGE
     Route: 058
     Dates: start: 2025, end: 202504

REACTIONS (3)
  - Surgery [Unknown]
  - Malaise [Unknown]
  - Beta haemolytic streptococcal infection [Recovered/Resolved]

NARRATIVE: CASE EVENT DATE: 20250101
